FAERS Safety Report 8473948-9 (Version None)
Quarter: 2012Q2

REPORT INFORMATION
  Report Type: 
  Country: None (occurrence: None)
  Receive Date: 20120628
  Receipt Date: 20120314
  Transmission Date: 20120825
  Serious: Yes (Other)
  Sender: FDA-Public Use
  Company Number: US-MYLANLABS-2012S1003843

PATIENT
  Age: 23 Year
  Sex: Male
  Weight: 64.41 kg

DRUGS (9)
  1. LITHIUM CARBONATE [Concomitant]
  2. CLOZAPINE [Suspect]
     Indication: ANTISOCIAL PERSONALITY DISORDER
     Dates: end: 20120224
  3. BENZTROPINE MESYLATE [Concomitant]
  4. HALDOL [Concomitant]
  5. FLUPHENAZINE HCL [Concomitant]
  6. CLOZAPINE [Suspect]
     Indication: SCHIZOPHRENIA, PARANOID TYPE
     Dates: end: 20120224
  7. LORAZEPAM [Concomitant]
  8. TRAZODONE HCL [Concomitant]
  9. COGENTIN [Concomitant]

REACTIONS (2)
  - LEUKOPENIA [None]
  - GRANULOCYTOPENIA [None]
